FAERS Safety Report 8525656-3 (Version None)
Quarter: 2012Q3

REPORT INFORMATION
  Report Type: 
  Country: None (occurrence: None)
  Receive Date: 20120720
  Receipt Date: 20120713
  Transmission Date: 20120928
  Serious: Yes (Hospitalization, Other)
  Sender: FDA-Public Use
  Company Number: US-US-EMD SERONO, INC.-7137436

PATIENT
  Sex: Male

DRUGS (1)
  1. REBIF [Suspect]
     Indication: MULTIPLE SCLEROSIS
     Dates: start: 20070523

REACTIONS (4)
  - PANCREATIC CARCINOMA [None]
  - PANCREATIC CARCINOMA METASTATIC [None]
  - INJECTION SITE MASS [None]
  - CHOLELITHIASIS [None]
